FAERS Safety Report 16178915 (Version 2)
Quarter: 2019Q3

REPORT INFORMATION
  Report Type: Spontaneous
  Country: TR (occurrence: TR)
  Receive Date: 20190410
  Receipt Date: 20190703
  Transmission Date: 20191004
  Serious: Yes (Hospitalization)
  Sender: FDA-Public Use
  Company Number: TR-LUPIN PHARMACEUTICALS INC.-2019-02147

PATIENT
  Age: 66 Year
  Sex: Female

DRUGS (7)
  1. ERDOSTIN [Concomitant]
     Indication: PNEUMONIA
     Dosage: 300 MILLIGRAM, BID
     Route: 065
  2. NORVASC [Concomitant]
     Active Substance: AMLODIPINE BESYLATE
     Indication: PRODUCT USED FOR UNKNOWN INDICATION
     Dosage: 10 MILLIGRAM, QD
     Route: 065
  3. MOXIFLOXACIN HCL [Suspect]
     Active Substance: MOXIFLOXACIN
     Indication: PNEUMONIA
     Dosage: 400 MILLIGRAM, QD
     Route: 048
  4. PAROL [Concomitant]
     Active Substance: ACETAMINOPHEN
     Indication: PNEUMONIA
     Dosage: 500 MILLIGRAM EVERY 8 HOURS
     Route: 065
  5. AKSEF                              /00454602/ [Concomitant]
     Indication: PNEUMONIA
     Dosage: 750 MILLIGRAM, SINGLE
     Route: 030
  6. CORASPIN [Concomitant]
     Active Substance: ASPIRIN
     Indication: PRODUCT USED FOR UNKNOWN INDICATION
     Dosage: 100 MILLIGRAM, QD
     Route: 065
  7. AKSEF                              /00454602/ [Concomitant]
     Dosage: 500 MILLIGRAM, BID
     Route: 048

REACTIONS (6)
  - Abnormal behaviour [Recovered/Resolved]
  - Logorrhoea [Recovered/Resolved]
  - Hyperglycaemia [Recovered/Resolved]
  - Blood creatinine increased [Recovered/Resolved]
  - Hallucination, visual [Recovered/Resolved]
  - Euphoric mood [Recovered/Resolved]
